FAERS Safety Report 13453103 (Version 1)
Quarter: 2017Q2

REPORT INFORMATION
  Report Type: Spontaneous
  Country: US (occurrence: US)
  Receive Date: 20170418
  Receipt Date: 20170418
  Transmission Date: 20170830
  Serious: Yes (Hospitalization)
  Sender: FDA-Public Use
  Company Number: US-PERRIGO-17US002991

PATIENT
  Age: 61 Year
  Sex: Male
  Weight: 102.4 kg

DRUGS (5)
  1. LOSARTAN/HCTZ [Suspect]
     Active Substance: HYDROCHLOROTHIAZIDE\LOSARTAN
     Indication: HYPERTENSION
     Dosage: 100/25 DAILY
     Route: 048
     Dates: start: 201703, end: 20170410
  2. PRESCRIPTION MEDICATION FOR BACK PAIN [Concomitant]
     Indication: BACK PAIN
     Dosage: UNK
     Route: 065
  3. LEVOTHYROXINE. [Concomitant]
     Active Substance: LEVOTHYROXINE
     Indication: THYROID DISORDER
     Dosage: UNK
     Route: 065
     Dates: start: 201701
  4. TESTOSTERONE CYPIONATE. [Suspect]
     Active Substance: TESTOSTERONE CYPIONATE
     Indication: BLOOD TESTOSTERONE DECREASED
     Dosage: 0.7 ML Q 10 DAYS
     Route: 030
     Dates: start: 201703
  5. TESTOSTERONE CYPIONATE. [Suspect]
     Active Substance: TESTOSTERONE CYPIONATE
     Dosage: 0.5 ML Q 10 DAYS
     Route: 030
     Dates: start: 201610, end: 201703

REACTIONS (7)
  - Extrasystoles [Recovered/Resolved]
  - Chest pain [Recovered/Resolved]
  - Acne [Not Recovered/Not Resolved]
  - Vasodilatation [Not Recovered/Not Resolved]
  - Cough [Not Recovered/Not Resolved]
  - Dysphonia [Not Recovered/Not Resolved]
  - Joint swelling [Not Recovered/Not Resolved]

NARRATIVE: CASE EVENT DATE: 201701
